FAERS Safety Report 5251753-4 (Version None)
Quarter: 2007Q1

REPORT INFORMATION
  Report Type: 
  Country: None (occurrence: None)
  Receive Date: 20070228
  Receipt Date: 20070216
  Transmission Date: 20070707
  Serious: Yes (Other)
  Sender: FDA-Public Use
  Company Number: US-PFIZER INC-2007013672

PATIENT
  Sex: Female
  Weight: 56.7 kg

DRUGS (3)
  1. NEURONTIN [Suspect]
     Indication: COMPLEX REGIONAL PAIN SYNDROME
  2. LAMICTAL [Concomitant]
  3. SYNTHROID [Concomitant]

REACTIONS (3)
  - AMNESIA [None]
  - BREAST CANCER [None]
  - COGNITIVE DISORDER [None]
